FAERS Safety Report 8427274-4 (Version None)
Quarter: 2012Q2

REPORT INFORMATION
  Report Type: 
  Country: None (occurrence: None)
  Receive Date: 20120611
  Receipt Date: 20120601
  Transmission Date: 20120825
  Serious: Yes (Hospitalization)
  Sender: FDA-Public Use
  Company Number: JP-GLAXOSMITHKLINE-B0700775A

PATIENT
  Sex: Female

DRUGS (10)
  1. PROMACTA [Suspect]
     Indication: IDIOPATHIC THROMBOCYTOPENIC PURPURA
     Dosage: 12.5MG PER DAY
     Route: 048
     Dates: start: 20110104, end: 20110214
  2. AMLODIPINE [Concomitant]
     Dosage: 5MG PER DAY
     Route: 048
  3. VITAMIN B12 [Concomitant]
     Dosage: 500MCG PER DAY
     Route: 048
  4. ALENDRONATE SODIUM [Concomitant]
     Dosage: 35MG PER DAY
     Route: 048
  5. PREDNISOLONE [Concomitant]
     Indication: IDIOPATHIC THROMBOCYTOPENIC PURPURA
     Dosage: 7.5MG PER DAY
     Route: 048
  6. LIVALO [Concomitant]
     Dosage: 2MG PER DAY
     Route: 048
  7. SM [Concomitant]
     Dosage: 3.9G PER DAY
     Route: 048
  8. AMARYL [Concomitant]
     Dosage: 1MG PER DAY
     Route: 048
  9. LANSOPRAZOLE [Concomitant]
     Dosage: 15MG PER DAY
     Route: 048
  10. JANUVIA [Concomitant]
     Dosage: 50MG PER DAY
     Route: 048

REACTIONS (1)
  - THROMBOSIS [None]
